FAERS Safety Report 8283479 (Version 4)
Quarter: 2012Q4

REPORT INFORMATION
  Report Type: Report from Study
  Country: AU (occurrence: AU)
  Receive Date: 20111212
  Receipt Date: 20121217
  Transmission Date: 20130627
  Serious: Yes (Hospitalization)
  Sender: FDA-Public Use
  Company Number: AU-JNJFOC-20111009142

PATIENT
  Age: 79 Year
  Sex: Male
  Weight: 45.8 kg

DRUGS (18)
  1. ABIRATERONE ACETATE [Suspect]
     Route: 048
  2. ABIRATERONE ACETATE [Suspect]
     Indication: PROSTATE CANCER METASTATIC
     Route: 048
     Dates: start: 20111005
  3. PREDNISONE [Suspect]
     Indication: PROSTATE CANCER METASTATIC
     Route: 048
     Dates: start: 20111005
  4. TEMAZEPAM [Concomitant]
     Indication: PROPHYLAXIS
     Dates: start: 20111102, end: 20111203
  5. ZOLADEX [Concomitant]
     Indication: HORMONE THERAPY
     Route: 065
     Dates: start: 20080225
  6. PACKED CELLS [Concomitant]
     Indication: ANAEMIA
     Route: 065
     Dates: start: 20111013, end: 20111014
  7. PARACETAMOL [Concomitant]
     Indication: PAIN
     Route: 065
     Dates: start: 20080225, end: 20111130
  8. MAXOLON [Concomitant]
     Indication: NAUSEA
     Route: 065
     Dates: start: 20111102, end: 201111
  9. LACTULOSE [Concomitant]
     Indication: CONSTIPATION
     Route: 065
     Dates: end: 201111
  10. ASPIRIN [Concomitant]
     Indication: CARDIOVASCULAR EVENT PROPHYLAXIS
     Route: 065
     Dates: start: 20111014, end: 20111202
  11. BIMATOPROST [Concomitant]
     Indication: GLAUCOMA
     Route: 065
     Dates: end: 20111202
  12. TIMOLOL [Concomitant]
     Indication: GLAUCOMA
     Route: 065
     Dates: end: 20111202
  13. BRIMONIDINE [Concomitant]
     Indication: GLAUCOMA
     Route: 065
     Dates: end: 20111202
  14. CALCIUM [Concomitant]
     Indication: METASTASES TO BONE
     Route: 065
     Dates: end: 20111201
  15. COLOXYL WITH SENNA [Concomitant]
     Indication: CONSTIPATION
     Route: 065
     Dates: end: 20111203
  16. OXYCONTIN [Concomitant]
     Indication: PAIN
     Route: 065
     Dates: end: 20111203
  17. OXYNORM [Concomitant]
     Indication: PAIN
     Route: 065
     Dates: end: 20111203
  18. SOMAC [Concomitant]
     Indication: GASTROOESOPHAGEAL REFLUX DISEASE
     Route: 065
     Dates: end: 20111202

REACTIONS (3)
  - Vomiting [Not Recovered/Not Resolved]
  - Anaemia [Recovered/Resolved]
  - Fatigue [Not Recovered/Not Resolved]
